FAERS Safety Report 15896227 (Version 2)
Quarter: 2019Q1

REPORT INFORMATION
  Report Type: Spontaneous
  Country: US (occurrence: US)
  Receive Date: 20190131
  Receipt Date: 20190206
  Transmission Date: 20190417
  Serious: Yes (Life-Threatening, Hospitalization)
  Sender: FDA-Public Use
  Company Number: US-TEVA-2019-US-1004329

PATIENT
  Age: 38 Year
  Sex: Female

DRUGS (15)
  1. EPINEPHRINE. [Suspect]
     Active Substance: EPINEPHRINE
     Dosage: DRIP
     Route: 050
  2. CLONAZEPAM. [Suspect]
     Active Substance: CLONAZEPAM
     Route: 048
  3. CYPROHEPTADINE. [Suspect]
     Active Substance: CYPROHEPTADINE
     Route: 048
  4. ATROPINE. [Suspect]
     Active Substance: ATROPINE
     Route: 065
  5. SODIUM BICARBONATE. [Suspect]
     Active Substance: SODIUM BICARBONATE
     Dosage: BOLUS FOLLOWED BY DRIP
     Route: 050
  6. INSULIN [Suspect]
     Active Substance: INSULIN NOS
     Dosage: HIGH DOSE BOLUS WITH DRIP
     Route: 050
  7. PROMETHAZINE [Suspect]
     Active Substance: PROMETHAZINE\PROMETHAZINE HYDROCHLORIDE
     Route: 048
  8. MONTELUKAST [Suspect]
     Active Substance: MONTELUKAST SODIUM
     Route: 048
  9. NOREPINEPHRINE. [Suspect]
     Active Substance: NOREPINEPHRINE
     Dosage: DRIP
     Route: 050
  10. NALOXONE [Suspect]
     Active Substance: NALOXONE
     Route: 065
  11. CALCIUM GLUCONATE. [Suspect]
     Active Substance: CALCIUM GLUCONATE
     Route: 065
  12. FAT EMULSION NOS [Suspect]
     Active Substance: EGG PHOSPHOLIPIDS\SAFFLOWER OIL\SOYBEAN OIL
     Dosage: WITH SERIAL BOLUSES FOLLOWED BY A CONTINUOUS INFUSION
     Route: 050
  13. AMLODIPINE [Suspect]
     Active Substance: AMLODIPINE BESYLATE
     Route: 048
  14. AMITRIPTYLINE [Suspect]
     Active Substance: AMITRIPTYLINE
     Route: 048
  15. GLUCAGON. [Suspect]
     Active Substance: GLUCAGON
     Route: 065

REACTIONS (10)
  - Mental status changes [Recovering/Resolving]
  - Overdose [Recovering/Resolving]
  - Intestinal ischaemia [Recovered/Resolved]
  - Pulseless electrical activity [Recovering/Resolving]
  - Shock [Recovering/Resolving]
  - Respiratory failure [Recovered/Resolved]
  - Cardiogenic shock [Recovering/Resolving]
  - Neurogenic shock [Recovering/Resolving]
  - Cardiac arrest [Recovering/Resolving]
  - Hypoperfusion [Recovered/Resolved with Sequelae]
